FAERS Safety Report 8480031-5 (Version None)
Quarter: 2012Q2

REPORT INFORMATION
  Report Type: 
  Country: None (occurrence: None)
  Receive Date: 20120615
  Receipt Date: 20120605
  Transmission Date: 20120825
  Serious: Yes (Hospitalization)
  Sender: FDA-Public Use
  Company Number: 2012SP025639

PATIENT
  Age: 38 Year
  Sex: Male

DRUGS (3)
  1. LAMICTAL [Concomitant]
  2. SAPHRIS [Suspect]
     Indication: PSYCHOTIC DISORDER
     Dosage: 5 MG;BID;SL
     Route: 060
     Dates: end: 20120502
  3. RISPERDAL CONSTA [Concomitant]

REACTIONS (3)
  - BLOOD PRESSURE INCREASED [None]
  - NIGHTMARE [None]
  - AGITATION [None]
